FAERS Safety Report 4365656-0 (Version None)
Quarter: 2004Q2

REPORT INFORMATION
  Report Type: 
  Country: None (occurrence: None)
  Receive Date: 20040521
  Receipt Date: 20040530
  Transmission Date: 20050107
  Serious: Yes (Other)
  Sender: FDA-Public Use
  Company Number: FR_040403844

PATIENT
  Age: 73 Year
  Sex: Female

DRUGS (6)
  1. FORTEO [Suspect]
     Indication: OSTEOPOROSIS
     Dosage: 20 UG/1 DAY
     Dates: start: 20040306, end: 20040329
  2. LEVOTHYROX (LEVOTHYROXINE SODIUM) [Concomitant]
  3. PROPRANOLOL [Concomitant]
  4. CALCIDOSE (CALCIUM CARBONATE) [Concomitant]
  5. ACETAMINOPHEN W/ CODEINE [Concomitant]
  6. FOSAMAX [Concomitant]

REACTIONS (9)
  - ANGIONEUROTIC OEDEMA [None]
  - BLOOD ALKALINE PHOSPHATASE INCREASED [None]
  - FACE OEDEMA [None]
  - FATIGUE [None]
  - LOCALISED OEDEMA [None]
  - OEDEMA PERIPHERAL [None]
  - PALPITATIONS [None]
  - SPEECH DISORDER [None]
  - TOOTH ABSCESS [None]
